FAERS Safety Report 7637851-6 (Version None)
Quarter: 2011Q3

REPORT INFORMATION
  Report Type: 
  Country: None (occurrence: None)
  Receive Date: 20110727
  Receipt Date: 20110715
  Transmission Date: 20111222
  Serious: Yes (Other)
  Sender: FDA-Public Use
  Company Number: FR-UCBSA-037243

PATIENT
  Sex: Female

DRUGS (3)
  1. KEPPRA [Suspect]
     Route: 048
     Dates: start: 20110525, end: 20110528
  2. NIMOTOP [Concomitant]
     Dosage: 10MG/50ML; INJECTABLE SOLUION FOR INFUSION
     Route: 042
     Dates: start: 20110525, end: 20110527
  3. LOVENOX [Suspect]
     Dosage: INJECTABLE SOLUTION;  4000UI/0.4ML
     Route: 058
     Dates: start: 20110525, end: 20110527

REACTIONS (2)
  - RASH MACULO-PAPULAR [None]
  - PRURITUS [None]
